FAERS Safety Report 5275152-4 (Version None)
Quarter: 2007Q1

REPORT INFORMATION
  Report Type: 
  Country: None (occurrence: None)
  Receive Date: 20070326
  Receipt Date: 20070312
  Transmission Date: 20070707
  Serious: Yes (Hospitalization)
  Sender: FDA-Public Use
  Company Number: JP-NOVOPROD-260495

PATIENT
  Age: 62 Year
  Sex: Male
  Weight: 75 kg

DRUGS (6)
  1. NOVOLIN R [Suspect]
     Indication: INSULIN-REQUIRING TYPE II DIABETES MELLITUS
     Dosage: 36 UL, QD
     Route: 058
     Dates: start: 20050204
  2. VOGLIBOSE [Concomitant]
     Indication: DIABETES MELLITUS NON-INSULIN-DEPENDENT
     Dosage: .9 MG, QD
     Route: 048
     Dates: start: 20050204
  3. NORVASC [Concomitant]
     Indication: HYPERTENSION
     Dosage: 5 MG, UNK
     Route: 048
     Dates: start: 20050204
  4. SETIPTILINE [Concomitant]
     Indication: DEPRESSION
     Dosage: 6 MG, QD
     Route: 048
     Dates: start: 20050204
  5. KINEX [Concomitant]
     Indication: DRUG USE FOR UNKNOWN INDICATION
     Dosage: 150 MG, QD
     Route: 048
     Dates: start: 20050204
  6. DEZOLAM [Concomitant]
     Indication: DRUG USE FOR UNKNOWN INDICATION
     Dosage: 1.5 MG, QD
     Route: 048
     Dates: start: 20050204

REACTIONS (2)
  - CEREBRAL INFARCTION [None]
  - DEVICE MALFUNCTION [None]
